FAERS Safety Report 6906628-9 (Version None)
Quarter: 2010Q3

REPORT INFORMATION
  Report Type: 
  Country: None (occurrence: None)
  Receive Date: 20100804
  Receipt Date: 20100727
  Transmission Date: 20110219
  Serious: No
  Sender: FDA-Public Use
  Company Number: ES-JNJFOC-20100708509

PATIENT
  Age: 80 Year
  Sex: Female

DRUGS (4)
  1. DURAGESIC-100 [Suspect]
     Indication: PAIN
     Dosage: USED HALF PATCH (REPORTED AS 6 UG/HR)
     Route: 062
  2. DURAGESIC-100 [Suspect]
     Route: 062
  3. DURAGESIC-100 [Suspect]
     Route: 062
  4. ACREL [Concomitant]
     Indication: OSTEOPOROSIS
     Route: 065

REACTIONS (4)
  - DRUG PRESCRIBING ERROR [None]
  - PRURITUS [None]
  - SOMNOLENCE [None]
  - WRONG TECHNIQUE IN DRUG USAGE PROCESS [None]
